FAERS Safety Report 13738196 (Version 2)
Quarter: 2017Q3

REPORT INFORMATION
  Report Type: Spontaneous
  Country: JP (occurrence: JP)
  Receive Date: 20170710
  Receipt Date: 20170714
  Transmission Date: 20171127
  Serious: Yes (Hospitalization)
  Sender: FDA-Public Use
  Company Number: JP-ARBOR PHARMACEUTICALS, LLC-JP-2017ARB000645

PATIENT

DRUGS (1)
  1. GLIADEL [Suspect]
     Active Substance: CARMUSTINE
     Indication: MALIGNANT GLIOMA
     Dosage: 7.7 MG, 5 TOTAL
     Dates: start: 20170622, end: 20170623

REACTIONS (2)
  - Somnolence [Recovered/Resolved]
  - Pneumocephalus [Recovered/Resolved]

NARRATIVE: CASE EVENT DATE: 20170622
